FAERS Safety Report 12633272 (Version 3)
Quarter: 2016Q3

REPORT INFORMATION
  Report Type: Spontaneous
  Country: US (occurrence: US)
  Receive Date: 20160808
  Receipt Date: 20160808
  Transmission Date: 20161109
  Serious: No
  Sender: FDA-Public Use
  Company Number: US-BEH-2016060240

PATIENT
  Sex: Female
  Weight: 64 kg

DRUGS (22)
  1. OMEPRAZOLE. [Concomitant]
     Active Substance: OMEPRAZOLE
  2. ACETAMINOPHEN. [Concomitant]
     Active Substance: ACETAMINOPHEN
  3. AZELASTINE [Concomitant]
     Active Substance: AZELASTINE
  4. HYDROCHLORTHIAZIDE [Concomitant]
     Active Substance: HYDROCHLOROTHIAZIDE
  5. POTASSIUM [Concomitant]
     Active Substance: POTASSIUM
  6. HIZENTRA [Suspect]
     Active Substance: HUMAN IMMUNOGLOBULIN G
  7. DIPHENHYDRAMINE. [Concomitant]
     Active Substance: DIPHENHYDRAMINE
  8. BYSTOLIC [Concomitant]
     Active Substance: NEBIVOLOL HYDROCHLORIDE
  9. LEVAQUIN [Concomitant]
     Active Substance: LEVOFLOXACIN
  10. ESTRADIOL. [Concomitant]
     Active Substance: ESTRADIOL
  11. HIZENTRA [Suspect]
     Active Substance: HUMAN IMMUNOGLOBULIN G
     Indication: IMMUNODEFICIENCY COMMON VARIABLE
  12. EPIPEN [Concomitant]
     Active Substance: EPINEPHRINE
  13. ZYRTEC [Concomitant]
     Active Substance: CETIRIZINE HYDROCHLORIDE
  14. ZOFRAN [Concomitant]
     Active Substance: ONDANSETRON HYDROCHLORIDE
  15. COEDINE [Concomitant]
  16. SINGULAIR [Concomitant]
     Active Substance: MONTELUKAST SODIUM
  17. RANITIDINE. [Concomitant]
     Active Substance: RANITIDINE
  18. PROAIR HFA [Concomitant]
     Active Substance: ALBUTEROL SULFATE
  19. HIZENTRA [Suspect]
     Active Substance: HUMAN IMMUNOGLOBULIN G
     Route: 058
     Dates: start: 20150604
  20. VITAMIN D [Concomitant]
     Active Substance: CHOLECALCIFEROL
  21. FERROUS SULFATE. [Concomitant]
     Active Substance: FERROUS SULFATE
  22. TESSALON [Concomitant]
     Active Substance: BENZONATATE

REACTIONS (2)
  - Infection [Unknown]
  - Candida infection [Unknown]
